FAERS Safety Report 6218497-3 (Version None)
Quarter: 2009Q2

REPORT INFORMATION
  Report Type: 
  Country: None (occurrence: None)
  Receive Date: 20090604
  Receipt Date: 20090604
  Transmission Date: 20091009
  Serious: Yes (Life-Threatening, Disabling)
  Sender: FDA-Public Use
  Company Number: None

PATIENT
  Age: 63 Year
  Sex: Female
  Weight: 54.4316 kg

DRUGS (1)
  1. TRILEPTAL [Suspect]
     Indication: BIPOLAR DISORDER
     Dosage: 300MG
     Dates: start: 20050615, end: 20081112

REACTIONS (4)
  - BALANCE DISORDER [None]
  - HYPONATRAEMIA [None]
  - NAUSEA [None]
  - PAIN IN EXTREMITY [None]
